FAERS Safety Report 7469410-2 (Version None)
Quarter: 2011Q2

REPORT INFORMATION
  Report Type: 
  Country: None (occurrence: None)
  Receive Date: 20110510
  Receipt Date: 20110504
  Transmission Date: 20111010
  Serious: Yes (Hospitalization)
  Sender: FDA-Public Use
  Company Number: NL-MEDIMMUNE-MEDI-0012413

PATIENT
  Sex: Female
  Weight: 7.67 kg

DRUGS (2)
  1. SYNAGIS [Suspect]
     Route: 030
     Dates: start: 20110131
  2. SYNAGIS [Suspect]
     Route: 030
     Dates: start: 20100913, end: 20110103

REACTIONS (4)
  - NASOPHARYNGITIS [None]
  - ILL-DEFINED DISORDER [None]
  - WHEEZING [None]
  - DYSPNOEA [None]
